FAERS Safety Report 23752858 (Version 3)
Quarter: 2024Q2

REPORT INFORMATION
  Report Type: Report from Study
  Country: CA (occurrence: CA)
  Receive Date: 20240417
  Receipt Date: 20240613
  Transmission Date: 20240716
  Serious: Yes (Hospitalization, Other)
  Sender: FDA-Public Use
  Company Number: CA-GLAXOSMITHKLINE-CA2023055830

PATIENT

DRUGS (2)
  1. MEPOLIZUMAB [Suspect]
     Active Substance: MEPOLIZUMAB
     Indication: Asthma
     Dosage: 100 MG, Q4W
     Route: 058
     Dates: start: 20220809
  2. VENTOLIN [Concomitant]
     Active Substance: ALBUTEROL SULFATE
     Indication: Product used for unknown indication
     Dosage: 4 PUFF(S), QD 2 PUFFS IN THE MORNING AND 2 AT BEDTIME

REACTIONS (12)
  - Pneumonia [Unknown]
  - Lung disorder [Not Recovered/Not Resolved]
  - Sneezing [Unknown]
  - Nasal discomfort [Unknown]
  - Oxygen saturation [Unknown]
  - Wheezing [Not Recovered/Not Resolved]
  - Asthma [Unknown]
  - Pain [Unknown]
  - Injection site discomfort [Not Recovered/Not Resolved]
  - Injection site reaction [Unknown]
  - Injection site pain [Recovered/Resolved]
  - Wrong technique in device usage process [Unknown]

NARRATIVE: CASE EVENT DATE: 20240501
